FAERS Safety Report 17087064 (Version 1)
Quarter: 2019Q4

REPORT INFORMATION
  Report Type: Spontaneous
  Country: GB (occurrence: GB)
  Receive Date: 20191128
  Receipt Date: 20191128
  Transmission Date: 20200122
  Serious: Yes (Hospitalization)
  Sender: FDA-Public Use
  Company Number: GB-TEVA-2019-GB-1142396

PATIENT
  Age: 59 Year
  Sex: Male
  Weight: 64 kg

DRUGS (2)
  1. LANSOPRAZOLE. [Concomitant]
     Active Substance: LANSOPRAZOLE
  2. CISPLATIN. [Suspect]
     Active Substance: CISPLATIN
     Indication: LIP AND/OR ORAL CAVITY CANCER
     Dosage: 185 MG
     Route: 042
     Dates: start: 20181212, end: 20190116

REACTIONS (3)
  - Hypophagia [Unknown]
  - Acute kidney injury [Unknown]
  - Dehydration [Unknown]

NARRATIVE: CASE EVENT DATE: 20190119
